FAERS Safety Report 8246326-5 (Version None)
Quarter: 2012Q1

REPORT INFORMATION
  Report Type: 
  Country: None (occurrence: None)
  Receive Date: 20120329
  Receipt Date: 20120329
  Transmission Date: 20120608
  Serious: Yes (Hospitalization)
  Sender: FDA-Public Use
  Company Number: None

PATIENT
  Age: 64 Year
  Sex: Male
  Weight: 75 kg

DRUGS (11)
  1. GLIPIZIDE [Suspect]
     Indication: DIABETES MELLITUS
     Dosage: 5MG BID PO CHRONIC
     Route: 048
  2. VIT C [Concomitant]
  3. LAMOTIL [Concomitant]
  4. XELODA [Suspect]
     Indication: NEOPLASM MALIGNANT
     Dosage: 500MG TID M-F PO  X PAST MONTH
     Route: 048
  5. MINOCYCLINE HCL [Concomitant]
  6. COUMADIN [Concomitant]
  7. HYDROCHLOROTHIAZIDE [Suspect]
     Indication: HYPERTENSION
     Dosage: 25MG DAILY PO CHRONIC
     Route: 048
  8. IRON [Concomitant]
  9. SIMVASTATIN [Concomitant]
  10. POTASSIUM CHLORIDE [Concomitant]
  11. FLOMAX [Concomitant]

REACTIONS (6)
  - METASTASES TO LIVER [None]
  - DIARRHOEA [None]
  - HYPOGLYCAEMIA [None]
  - HYPOMAGNESAEMIA [None]
  - HYPOKALAEMIA [None]
  - BLOOD GLUCOSE INCREASED [None]
